FAERS Safety Report 24965872 (Version 1)
Quarter: 2025Q1

REPORT INFORMATION
  Report Type: Spontaneous
  Country: CA (occurrence: CA)
  Receive Date: 20250213
  Receipt Date: 20250213
  Transmission Date: 20250409
  Serious: Yes (Other)
  Sender: ABBVIE
  Company Number: CA-ABBVIE-6126958

PATIENT
  Age: 53 Year
  Sex: Male

DRUGS (22)
  1. HUMIRA [Suspect]
     Active Substance: ADALIMUMAB
     Indication: Crohn^s disease
     Route: 058
  2. RAMIPRIL [Concomitant]
     Active Substance: RAMIPRIL
     Indication: Product used for unknown indication
  3. METHOTREXA ?TE [Concomitant]
     Indication: Product used for unknown indication
  4. XELJANZ [Concomitant]
     Active Substance: TOFACITINIB CITRATE
     Indication: Product used for unknown indication
  5. BISOPROLOL [Concomitant]
     Active Substance: BISOPROLOL
     Indication: Product used for unknown indication
  6. PARACETAMO ?L AND ?CAFFEINE [Concomitant]
     Indication: Product used for unknown indication
  7. MACROGOL 3350 [Concomitant]
     Indication: Product used for unknown indication
  8. LATANOPROST [Concomitant]
     Active Substance: LATANOPROST
     Indication: Product used for unknown indication
  9. ATORVASTATIN CALCIUM [Concomitant]
     Active Substance: ATORVASTATIN CALCIUM
     Indication: Product used for unknown indication
  10. RIVAROXABAN [Concomitant]
     Active Substance: RIVAROXABAN
     Indication: Product used for unknown indication
  11. FOLIC ACID [Concomitant]
     Active Substance: FOLIC ACID
     Indication: Product used for unknown indication
  12. DORZOLAMIDE [Concomitant]
     Active Substance: DORZOLAMIDE
     Indication: Product used for unknown indication
  13. AMLODIPINE BESYLATE [Concomitant]
     Indication: Product used for unknown indication
  14. FESOTERODIN ?E FUMARATE [Concomitant]
     Indication: Product used for unknown indication
  15. PRAVASTATIN SODIUM [Concomitant]
     Indication: Product used for unknown indication
  16. LANSOPRAZO ?LE [Concomitant]
     Indication: Product used for unknown indication
  17. NITROFURANT ?OIN [Concomitant]
     Indication: Product used for unknown indication
  18. LYRICA [Concomitant]
     Active Substance: PREGABALIN
     Indication: Product used for unknown indication
  19. BETNOVATE [Concomitant]
     Active Substance: BETAMETHASONE
     Indication: Product used for unknown indication
  20. CALCIUM CARBONATE [Concomitant]
     Indication: Product used for unknown indication
  21. MINERAL OIL LIGHT [Concomitant]
     Indication: Product used for unknown indication
  22. NAPHAZOLINE ?HYDROCHLOR ?IDE [Concomitant]
     Indication: Product used for unknown indication

REACTIONS (52)
  - Swollen tongue [Unknown]
  - Bronchiectasis [Unknown]
  - Abdominal discomfort [Unknown]
  - Accidental overdose [Unknown]
  - Arthritis [Unknown]
  - Burns second degree [Unknown]
  - Cardiac murmur [Unknown]
  - Catarrh [Unknown]
  - Cerebrovascular accident [Unknown]
  - Colitis ulcerative [Unknown]
  - Condition aggravated [Unknown]
  - Confusional state [Unknown]
  - COVID-19 [Unknown]
  - Deep vein thrombosis [Unknown]
  - Depression [Unknown]
  - Drug ineffective [Unknown]
  - Eczema [Unknown]
  - Frequent bowel movements [Unknown]
  - Gingival pain [Unknown]
  - Fatigue [Unknown]
  - Haematochezia [Unknown]
  - Headache [Unknown]
  - Hypopnoea [Unknown]
  - Off label use [Unknown]
  - Pain [Unknown]
  - Pain in extremity [Unknown]
  - Palpitations [Unknown]
  - Parosmia [Unknown]
  - Product use in unapproved indication [Unknown]
  - Pulmonary embolism [Unknown]
  - Pyrexia [Unknown]
  - Rash [Unknown]
  - Rectal haemorrhage [Unknown]
  - Rhinitis [Unknown]
  - Somnolence [Unknown]
  - Steroid dependence [Unknown]
  - Stress [Unknown]
  - Systemic lupus erythematosus [Unknown]
  - Tinnitus [Unknown]
  - Tubulointerstitial nephritis [Unknown]
  - Vertigo [Unknown]
  - Weight decreased [Unknown]
  - Alcohol poisoning [Unknown]
  - Dysgeusia [Unknown]
  - Impaired quality of life [Unknown]
  - Impaired work ability [Unknown]
  - Inappropriate schedule of product administration [Unknown]
  - Intentional product use issue [Unknown]
  - Loss of personal independence in daily activities [Unknown]
  - Medication error [Unknown]
  - Migraine [Unknown]
  - Nightmare [Unknown]
